FAERS Safety Report 25078426 (Version 1)
Quarter: 2025Q1

REPORT INFORMATION
  Report Type: Spontaneous
  Country: US (occurrence: US)
  Receive Date: 20250314
  Receipt Date: 20250314
  Transmission Date: 20250409
  Serious: No
  Sender: PFIZER
  Company Number: US-PFIZER INC-202500057011

PATIENT
  Age: 66 Year
  Sex: Female

DRUGS (10)
  1. IBRANCE [Suspect]
     Active Substance: PALBOCICLIB
     Route: 048
     Dates: start: 20250303
  2. METHADONE [Concomitant]
     Active Substance: METHADONE HYDROCHLORIDE
  3. SENNA LEAF [Concomitant]
     Active Substance: SENNA LEAF
  4. SUMATRIPTAN [Concomitant]
     Active Substance: SUMATRIPTAN
  5. MUPIROCIN [Concomitant]
     Active Substance: MUPIROCIN
  6. ONDANSETRON [Concomitant]
     Active Substance: ONDANSETRON
  7. PANTOPRAZOLE [Concomitant]
     Active Substance: PANTOPRAZOLE
  8. CLAVULANATE POTASSIUM [Concomitant]
     Active Substance: CLAVULANATE POTASSIUM
  9. REPATHA [Concomitant]
     Active Substance: EVOLOCUMAB
  10. STIOLTO RESPIMAT [Concomitant]
     Active Substance: OLODATEROL HYDROCHLORIDE\TIOTROPIUM BROMIDE MONOHYDRATE

REACTIONS (2)
  - Diarrhoea [Not Recovered/Not Resolved]
  - Constipation [Not Recovered/Not Resolved]

NARRATIVE: CASE EVENT DATE: 20250313
